FAERS Safety Report 18412790 (Version 13)
Quarter: 2025Q1

REPORT INFORMATION
  Report Type: Report from Study
  Country: FR (occurrence: FR)
  Receive Date: 20201022
  Receipt Date: 20250121
  Transmission Date: 20250409
  Serious: Yes (Other)
  Sender: ABBVIE
  Company Number: FR-ABBVIE-20K-056-3391795-00

PATIENT
  Age: 71 Year
  Sex: Female
  Weight: 46 kg

DRUGS (26)
  1. VENETOCLAX [Suspect]
     Active Substance: VENETOCLAX
     Indication: Chronic lymphocytic leukaemia
     Route: 048
     Dates: start: 20200217, end: 20200223
  2. VENETOCLAX [Suspect]
     Active Substance: VENETOCLAX
     Indication: Chronic lymphocytic leukaemia
     Dosage: DOSE INCREASE IN ACCORDANCE WITH THE VENETOCLAX DOSE SCHEDULE
     Route: 048
     Dates: start: 20200224, end: 20200301
  3. VENETOCLAX [Suspect]
     Active Substance: VENETOCLAX
     Indication: Chronic lymphocytic leukaemia
     Dosage: DOSE INCREASE IN ACCORDANCE WITH THE VENETOCLAX DOSE SCHEDULE
     Route: 048
     Dates: start: 20200302, end: 20200308
  4. VENETOCLAX [Suspect]
     Active Substance: VENETOCLAX
     Indication: Chronic lymphocytic leukaemia
     Dosage: DOSE INCREASE IN ACCORDANCE WITH THE VENETOCLAX DOSE SCHEDULE
     Route: 048
     Dates: start: 20200309, end: 20200315
  5. VENETOCLAX [Suspect]
     Active Substance: VENETOCLAX
     Indication: Chronic lymphocytic leukaemia
     Dosage: DOSE INCREASE IN ACCORDANCE WITH THE VENETOCLAX DOSE SCHEDULE
     Route: 048
     Dates: start: 20200316, end: 20200705
  6. VENETOCLAX [Suspect]
     Active Substance: VENETOCLAX
     Indication: Chronic lymphocytic leukaemia
     Dosage: MODIFICATION OF THE DAILY DOSE
     Route: 048
     Dates: start: 20200706
  7. RITUXIMAB [Concomitant]
     Active Substance: RITUXIMAB
     Indication: Chronic lymphocytic leukaemia
     Dates: start: 20200330, end: 20200819
  8. CHOLECALCIFEROL [Concomitant]
     Active Substance: CHOLECALCIFEROL
     Indication: Vitamin supplementation
     Dates: start: 20200916
  9. ROMIPLOSTIM [Concomitant]
     Active Substance: ROMIPLOSTIM
     Indication: Immune thrombocytopenia
     Route: 065
     Dates: start: 20100412
  10. BACTRIM [Concomitant]
     Active Substance: SULFAMETHOXAZOLE\TRIMETHOPRIM
     Indication: Antibiotic prophylaxis
     Dates: start: 20120705
  11. VALACYCLOVIR HYDROCHLORIDE [Concomitant]
     Active Substance: VALACYCLOVIR HYDROCHLORIDE
     Indication: Antiviral prophylaxis
     Dates: start: 20120705
  12. LEUCOVORIN CALCIUM [Concomitant]
     Active Substance: LEUCOVORIN CALCIUM
     Indication: Blood disorder prophylaxis
     Dates: start: 20170518
  13. OMEPRAZOLE [Concomitant]
     Active Substance: OMEPRAZOLE
     Indication: Gastrooesophageal reflux prophylaxis
     Dates: start: 201912, end: 20200630
  14. LANSOPRAZOLE [Concomitant]
     Active Substance: LANSOPRAZOLE
     Indication: Gastrooesophageal reflux prophylaxis
     Dates: start: 20200701
  15. POLYETHYLENE GLYCOLS [Concomitant]
     Active Substance: POLYETHYLENE GLYCOLS
     Indication: Constipation
     Dates: start: 20200219
  16. EFFEXOR [Concomitant]
     Active Substance: VENLAFAXINE HYDROCHLORIDE
     Indication: Anxiolytic therapy
     Dates: start: 20200219
  17. BROMAZEPAM [Concomitant]
     Active Substance: BROMAZEPAM
     Indication: Anxiolytic therapy
     Dates: start: 20200219
  18. NPLATE [Concomitant]
     Active Substance: ROMIPLOSTIM
     Indication: Immune thrombocytopenia
     Dates: start: 20100412
  19. PREVENAR [Concomitant]
     Active Substance: PNEUMOCOCCAL 7-VALENT CONJUGATE VACCINE (DIPHTHERIA CRM197 PROTEIN)
     Indication: Antibiotic therapy
     Dates: start: 20200303, end: 20200303
  20. PREVNAR 13 [Concomitant]
     Active Substance: STREPTOCOCCUS PNEUMONIAE TYPE 1 CAPSULAR POLYSACCHARIDE DIPHTHERIA CRM197 PROTEIN CONJUGATE ANTIGEN\
     Indication: Antibiotic prophylaxis
     Dates: start: 20200303, end: 20200303
  21. TRIMEBUTINE MALEATE [Concomitant]
     Active Substance: TRIMEBUTINE MALEATE
     Indication: Constipation
     Dates: start: 20200219
  22. Comirnaty [Concomitant]
     Indication: COVID-19 prophylaxis
     Dates: start: 20210219, end: 20210219
  23. Comirnaty [Concomitant]
     Indication: COVID-19 prophylaxis
     Dates: start: 20210319, end: 20210319
  24. Calperos [Concomitant]
     Indication: Hypocalcaemia
     Dates: start: 20200219, end: 20200819
  25. IBRUTINIB [Concomitant]
     Active Substance: IBRUTINIB
     Indication: Chronic lymphocytic leukaemia
     Dates: start: 20170412, end: 20200527
  26. IBRUTINIB [Concomitant]
     Active Substance: IBRUTINIB
     Indication: Chronic lymphocytic leukaemia
     Dates: start: 20200709

REACTIONS (37)
  - Immune thrombocytopenia [Recovered/Resolved]
  - Hypocalcaemia [Recovered/Resolved]
  - Immune thrombocytopenia [Recovered/Resolved]
  - Asthenia [Recovering/Resolving]
  - Hypoglycaemia [Recovered/Resolved]
  - Cough [Recovered/Resolved]
  - Oedema peripheral [Recovered/Resolved]
  - Nasopharyngitis [Recovered/Resolved]
  - Hypophosphataemia [Recovered/Resolved]
  - Inguinal hernia [Not Recovered/Not Resolved]
  - Carpal tunnel syndrome [Not Recovered/Not Resolved]
  - Emphysema [Recovering/Resolving]
  - Paronychia [Recovered/Resolved]
  - Myalgia [Not Recovered/Not Resolved]
  - Musculoskeletal chest pain [Recovered/Resolved]
  - Epistaxis [Recovered/Resolved]
  - Thrombocytopenia [Recovered/Resolved]
  - Neutropenia [Recovered/Resolved]
  - Neutropenia [Recovered/Resolved]
  - Neutropenia [Recovered/Resolved]
  - Neutropenia [Recovered/Resolved]
  - Neutropenia [Recovered/Resolved]
  - Neutropenia [Recovered/Resolved]
  - Neutropenia [Recovered/Resolved]
  - Neutropenia [Recovered/Resolved]
  - Neutropenia [Recovered/Resolved]
  - Neutropenia [Recovered/Resolved]
  - Neutropenia [Recovered/Resolved]
  - Neutropenia [Recovered/Resolved]
  - Neutropenia [Recovered/Resolved]
  - Neutropenia [Recovered/Resolved]
  - Arthralgia [Recovering/Resolving]
  - Neutropenia [Recovered/Resolved]
  - Neutropenia [Not Recovered/Not Resolved]
  - Thrombocytopenia [Recovered/Resolved]
  - Thrombocytopenia [Recovered/Resolved]
  - Hypophosphataemia [Recovered/Resolved]

NARRATIVE: CASE EVENT DATE: 20200218
